FAERS Safety Report 16531142 (Version 1)
Quarter: 2019Q3

REPORT INFORMATION
  Report Type: Spontaneous
  Country: US (occurrence: US)
  Receive Date: 20190523
  Receipt Date: 20190523
  Transmission Date: 20191004
  Serious: No
  Sender: FDA-Public Use
  Company Number: None

PATIENT
  Age: 70 Year
  Sex: Male

DRUGS (1)
  1. ABIRATERONE 250MG TAB [Suspect]
     Active Substance: ABIRATERONE
     Indication: PROSTATE CANCER
     Dates: start: 201901

REACTIONS (4)
  - Pulmonary embolism [None]
  - Nerve compression [None]
  - Pyrexia [None]
  - Back pain [None]

NARRATIVE: CASE EVENT DATE: 20190510
